FAERS Safety Report 10149911 (Version 1)
Quarter: 2014Q2

REPORT INFORMATION
  Report Type: Spontaneous
  Country: US (occurrence: US)
  Receive Date: 20140502
  Receipt Date: 20140502
  Transmission Date: 20141212
  Serious: Yes (Other)
  Sender: FDA-Public Use
  Company Number: CHPA2014US005834

PATIENT
  Sex: Female

DRUGS (3)
  1. VOLTAREN GEL [Suspect]
     Indication: ARTHRITIS
     Dosage: LITTLE TO 4 GRAMS, TID
     Route: 061
  2. VOLTAREN GEL [Suspect]
     Indication: DRUG ADMINISTERED AT INAPPROPRIATE SITE
     Dosage: LITTLE TO 4 GRAMS, TID
     Route: 061
  3. VOLTAREN GEL [Suspect]
     Indication: OFF LABEL USE

REACTIONS (7)
  - Bronchitis [Recovered/Resolved]
  - Stress fracture [Not Recovered/Not Resolved]
  - Musculoskeletal pain [Recovered/Resolved]
  - Incorrect dose administered [Unknown]
  - Wrong technique in drug usage process [Unknown]
  - Drug administered at inappropriate site [Unknown]
  - Therapeutic response changed [Unknown]
